FAERS Safety Report 8966527 (Version 1)
Quarter: 2012Q4

REPORT INFORMATION
  Report Type: 
  Country: US (occurrence: US)
  Receive Date: 20121215
  Receipt Date: 20121215
  Transmission Date: 20130627
  Serious: Yes (Other)
  Sender: FDA-Public Use
  Company Number: US-TEVA-374951USA

PATIENT
  Sex: Female
  Weight: 56.75 kg

DRUGS (4)
  1. PLAN B ONE-STEP [Suspect]
     Indication: POST COITAL CONTRACEPTION
     Dosage: 1.5 Milligram Daily;
     Route: 048
  2. LORAZEPAM [Concomitant]
     Indication: ANXIETY
     Dosage: 1 Milligram Daily;
  3. LORAZEPAM [Concomitant]
     Indication: PANIC DISORDER
  4. LORAZEPAM [Concomitant]
     Indication: TRICHOTILLOMANIA

REACTIONS (3)
  - Abortion spontaneous [Not Recovered/Not Resolved]
  - Vaginal haemorrhage [Not Recovered/Not Resolved]
  - Pregnancy [Unknown]
